FAERS Safety Report 9266992 (Version 2)
Quarter: 2013Q2

REPORT INFORMATION
  Report Type: Spontaneous
  Country: US (occurrence: US)
  Receive Date: 20130502
  Receipt Date: 20130524
  Transmission Date: 20140414
  Serious: No
  Sender: FDA-Public Use
  Company Number: US-PFIZER INC-2013134822

PATIENT
  Age: 65 Year
  Sex: Female
  Weight: 63.49 kg

DRUGS (3)
  1. NEURONTIN [Suspect]
     Indication: INTERVERTEBRAL DISC PROTRUSION
     Dosage: 100 MG, 3X/DAY
     Route: 048
     Dates: start: 201304, end: 201304
  2. NEURONTIN [Suspect]
     Dosage: 300 MG, 3X/DAY
     Route: 048
     Dates: start: 201304, end: 20130427
  3. PERCOCET [Concomitant]
     Indication: PAIN
     Dosage: UNK

REACTIONS (3)
  - Faecal incontinence [Not Recovered/Not Resolved]
  - Chromaturia [Not Recovered/Not Resolved]
  - Off label use [Unknown]
